FAERS Safety Report 5522136-4 (Version None)
Quarter: 2007Q4

REPORT INFORMATION
  Report Type: 
  Country: None (occurrence: None)
  Receive Date: 20071120
  Receipt Date: 20071106
  Transmission Date: 20080405
  Serious: Yes (Life-Threatening)
  Sender: FDA-Public Use
  Company Number: GB-BAUSCH-2007BL004047

PATIENT
  Age: 1 Day
  Weight: 2 kg

DRUGS (2)
  1. GENTAMICIN SULFATE [Suspect]
     Indication: DRUG USE FOR UNKNOWN INDICATION
  2. PENICILLIN G [Suspect]
     Indication: GROUP B STREPTOCOCCUS NEONATAL SEPSIS
     Route: 042
     Dates: start: 20051229

REACTIONS (1)
  - DRUG INEFFECTIVE [None]
